FAERS Safety Report 7420529-1 (Version None)
Quarter: 2011Q2

REPORT INFORMATION
  Report Type: 
  Country: None (occurrence: None)
  Receive Date: 20110407
  Receipt Date: 20110330
  Transmission Date: 20111010
  Serious: Yes (Death)
  Sender: FDA-Public Use
  Company Number: 2011030152

PATIENT
  Age: 55 Year
  Sex: Female

DRUGS (13)
  1. ONSOLIS [Suspect]
     Indication: CANCER PAIN
     Dosage: TO BE TITRATED UP TO 4-200 MCG FILMS (UP TO 4 TIMES DAILY) BU, 1200 MCG, UP TO 4 TIMES DAILY, BU
     Route: 002
     Dates: start: 20100505, end: 20110314
  2. ONSOLIS [Suspect]
     Indication: CANCER PAIN
     Dosage: TO BE TITRATED UP TO 4-200 MCG FILMS (UP TO 4 TIMES DAILY) BU, 1200 MCG, UP TO 4 TIMES DAILY, BU
     Route: 002
     Dates: start: 20110315
  3. ALBUTEROL [Concomitant]
  4. AMBIEN [Concomitant]
  5. LORAZEPAM [Concomitant]
  6. MARINOL [Concomitant]
  7. FLEXERIL [Concomitant]
  8. ONSOLIS [Suspect]
  9. OXYCONTIN [Concomitant]
  10. OXYCODONE (OXYCODONE) [Concomitant]
  11. DIAZEPAM [Concomitant]
  12. ONDANSETRON [Concomitant]
  13. OPANA ER [Concomitant]

REACTIONS (1)
  - DEATH [None]
